FAERS Safety Report 5901756-9 (Version None)
Quarter: 2008Q3

REPORT INFORMATION
  Report Type: 
  Country: None (occurrence: None)
  Receive Date: 20080926
  Receipt Date: 20080926
  Transmission Date: 20090109
  Serious: Yes (Life-Threatening)
  Sender: FDA-Public Use
  Company Number: None

PATIENT
  Sex: Female
  Weight: 72.5755 kg

DRUGS (1)
  1. PRAVASTATIN [Suspect]
     Indication: BLOOD CHOLESTEROL INCREASED
     Dosage: 1 10 MG  1 @ BEDTIME PO  (DURATION: 1 DOSE ONLY)
     Route: 048
     Dates: start: 20080921, end: 20080921

REACTIONS (8)
  - COLD SWEAT [None]
  - DIZZINESS [None]
  - DYSPNOEA [None]
  - FLUSHING [None]
  - MALAISE [None]
  - RASH [None]
  - STOMACH DISCOMFORT [None]
  - URTICARIA [None]
